FAERS Safety Report 9931943 (Version 2)
Quarter: 2014Q1

REPORT INFORMATION
  Report Type: Spontaneous
  Country: US (occurrence: US)
  Receive Date: 20140228
  Receipt Date: 20140306
  Transmission Date: 20141002
  Serious: Yes (Other)
  Sender: FDA-Public Use
  Company Number: US-JNJFOC-20140213424

PATIENT
  Sex: 0

DRUGS (9)
  1. INFLIXIMAB, RECOMBINANT [Suspect]
     Indication: COLITIS ULCERATIVE
     Route: 042
  2. ADALIMUMAB [Suspect]
     Indication: PRODUCT USED FOR UNKNOWN INDICATION
     Route: 065
  3. CORTICOSTEROIDS [Concomitant]
     Route: 065
  4. 5-AMINOSALICYLIC ACID [Concomitant]
     Route: 065
  5. 6-MERCAPTOPURINE [Concomitant]
     Route: 065
  6. AZATHIOPRINE [Concomitant]
     Route: 065
  7. METHOTREXATE [Concomitant]
     Route: 065
  8. SULFASALAZINE [Concomitant]
     Route: 065
  9. CYCLOSPORIN [Concomitant]
     Route: 065

REACTIONS (4)
  - Hypoalbuminaemia [Unknown]
  - Hypersensitivity [Unknown]
  - Small intestinal obstruction [Unknown]
  - Gastroenteritis [Unknown]
